FAERS Safety Report 6199422-0 (Version None)
Quarter: 2009Q2

REPORT INFORMATION
  Report Type: 
  Country: None (occurrence: None)
  Receive Date: 20090519
  Receipt Date: 20090505
  Transmission Date: 20091009
  Serious: Yes (Hospitalization)
  Sender: FDA-Public Use
  Company Number: 267880

PATIENT
  Age: 61 Year
  Sex: Female

DRUGS (1)
  1. HEPARIN SODIUM [Suspect]
     Indication: DRUG USE FOR UNKNOWN INDICATION
     Dosage: 18 IU/KG, UNKNOWN, INTRAVENOUS
     Route: 042
     Dates: start: 20090323, end: 20090324

REACTIONS (2)
  - HAEMATOMA [None]
  - PLATELET COUNT DECREASED [None]
